FAERS Safety Report 7610730-6 (Version None)
Quarter: 2011Q3

REPORT INFORMATION
  Report Type: 
  Country: None (occurrence: None)
  Receive Date: 20110715
  Receipt Date: 20110706
  Transmission Date: 20111222
  Serious: Yes (Other)
  Sender: FDA-Public Use
  Company Number: FR-SANOFI-AVENTIS-2011SA042761

PATIENT
  Age: 74 Year
  Sex: Female

DRUGS (8)
  1. TRACLEER [Concomitant]
  2. ESOMEPRAZOLE MAGNESIUM [Concomitant]
  3. LOVENOX [Suspect]
     Route: 058
     Dates: start: 20110501, end: 20110519
  4. LASIX [Concomitant]
  5. SILDENAFIL CITRATE [Concomitant]
  6. PREDNISONE [Concomitant]
  7. CALCIPARINE [Suspect]
     Route: 058
     Dates: start: 20110501, end: 20110501
  8. POTASSIUM CHLORIDE [Concomitant]

REACTIONS (5)
  - SUBCUTANEOUS NODULE [None]
  - PRURITUS [None]
  - EOSINOPHILIA [None]
  - INJECTION SITE REACTION [None]
  - ERYTHEMA [None]
